FAERS Safety Report 4577418-X (Version None)
Quarter: 2005Q1

REPORT INFORMATION
  Report Type: 
  Country: None (occurrence: None)
  Receive Date: 20050208
  Receipt Date: 20050128
  Transmission Date: 20050727
  Serious: Yes (Other)
  Sender: FDA-Public Use
  Company Number: GBWYE386801FEB05

PATIENT
  Age: 39 Year

DRUGS (4)
  1. ADVIL [Suspect]
     Indication: PAIN
     Dosage: 400 MG 3 X PER 1 DAY, ORAL
     Route: 048
     Dates: start: 20050103, end: 20050107
  2. LITHIUM CARBONATE [Suspect]
     Indication: BIPOLAR DISORDER
     Dosage: 1 G 1XPER 1 DAY, ORAL
     Route: 048
     Dates: end: 20050101
  3. OLANZAPINE [Concomitant]
  4. PAROXETINE HCL [Concomitant]

REACTIONS (3)
  - ANTIPSYCHOTIC DRUG LEVEL INCREASED [None]
  - DRUG INTERACTION [None]
  - RENAL IMPAIRMENT [None]
